FAERS Safety Report 7933055-8 (Version None)
Quarter: 2011Q4

REPORT INFORMATION
  Report Type: 
  Country: None (occurrence: None)
  Receive Date: 20111122
  Receipt Date: 20111116
  Transmission Date: 20120403
  Serious: Yes (Hospitalization)
  Sender: FDA-Public Use
  Company Number: FR-EISAI INC-E2080-00430-SPO-FR

PATIENT
  Sex: Male

DRUGS (11)
  1. INOVELON [Suspect]
     Dosage: DOSE INCREASED BY 200 MG TWICE DAILY
     Route: 048
     Dates: start: 20100726, end: 20100929
  2. URBANYL [Concomitant]
     Dosage: 20 MG DAILY
     Route: 048
  3. RITALIN [Concomitant]
     Dosage: 40 MG DAILY
     Route: 048
  4. INOVELON [Suspect]
     Dosage: UNKNOWN
     Route: 048
     Dates: start: 20100701, end: 20100725
  5. INOVELON [Suspect]
     Route: 048
     Dates: start: 20101021, end: 20100101
  6. INOVELON [Suspect]
     Route: 048
     Dates: start: 20101101
  7. TOPIRAMATE [Concomitant]
     Dosage: UNKNOWN
     Route: 048
     Dates: end: 20101001
  8. INOVELON [Suspect]
     Route: 048
     Dates: start: 20100101, end: 20101103
  9. INOVELON [Suspect]
     Route: 048
     Dates: start: 20100930, end: 20101020
  10. DEPAKENE [Suspect]
     Route: 048
     Dates: end: 20101101
  11. DEPAKENE [Suspect]
     Dosage: 1/2 TABLET (250 MG) IN THE MORNING AND 1 TABLET (500 MG)
     Route: 048
     Dates: start: 20101101

REACTIONS (3)
  - EDUCATIONAL PROBLEM [None]
  - TREMOR [None]
  - IRRITABILITY [None]
